FAERS Safety Report 14020395 (Version 2)
Quarter: 2018Q1

REPORT INFORMATION
  Report Type: Spontaneous
  Country: FI (occurrence: FI)
  Receive Date: 20170928
  Receipt Date: 20180323
  Transmission Date: 20180508
  Serious: Yes (Other)
  Sender: FDA-Public Use
  Company Number: FI-BAYER-2017-183638

PATIENT
  Age: 35 Year
  Sex: Female

DRUGS (2)
  1. MIRENA [Suspect]
     Active Substance: LEVONORGESTREL
     Dosage: 20 MCG/24HR, CONT
     Route: 015
     Dates: start: 201206, end: 20170922
  2. MIRENA [Suspect]
     Active Substance: LEVONORGESTREL

REACTIONS (10)
  - Menometrorrhagia [None]
  - Genital pain [None]
  - Loss of consciousness [None]
  - Nausea [None]
  - Rectal haemorrhage [None]
  - Abdominal pain lower [None]
  - Device dislocation [None]
  - Dyspareunia [None]
  - Abdominal pain upper [None]
  - Pain [None]

NARRATIVE: CASE EVENT DATE: 201403
